FAERS Safety Report 10401028 (Version 4)
Quarter: 2015Q2

REPORT INFORMATION
  Report Type: Report from Study
  Country: BR (occurrence: BR)
  Receive Date: 20140821
  Receipt Date: 20150430
  Transmission Date: 20150821
  Serious: Yes (Other)
  Sender: FDA-Public Use
  Company Number: BR-ROCHE-1034357

PATIENT
  Age: 59 Year
  Sex: Female
  Weight: 79 kg

DRUGS (10)
  1. HYDROCHLOROTHIAZIDE. [Concomitant]
     Active Substance: HYDROCHLOROTHIAZIDE
     Route: 065
  2. LOSARTAN [Concomitant]
     Active Substance: LOSARTAN
     Route: 065
  3. ACTEMRA [Suspect]
     Active Substance: TOCILIZUMAB
     Indication: RHEUMATOID ARTHRITIS
     Dosage: MOST RECENT INFUSION JUL/2014?NEXT SCHEDULED INFUSION SEP/2014
     Route: 042
     Dates: start: 20100801
  4. SERTRALINE HYDROCHLORIDE. [Concomitant]
     Active Substance: SERTRALINE HYDROCHLORIDE
     Indication: DEPRESSION
  5. KETOROLAC [Concomitant]
     Active Substance: KETOROLAC\KETOROLAC TROMETHAMINE
  6. PARACETAMOL [Concomitant]
     Active Substance: ACETAMINOPHEN
  7. OMEGA 3 [Concomitant]
     Active Substance: OMEGA-3 FATTY ACIDS
  8. PANTOPRAZOLE [Concomitant]
     Active Substance: PANTOPRAZOLE SODIUM
     Route: 065
  9. SEPURIN [Concomitant]
  10. MUVINOR [Concomitant]
     Indication: BOWEL MOVEMENT IRREGULARITY

REACTIONS (8)
  - Varicose vein [Not Recovered/Not Resolved]
  - Urinary tract infection [Recovered/Resolved]
  - Anxiety [Not Recovered/Not Resolved]
  - Hypertension [Unknown]
  - Immunodeficiency [Unknown]
  - Arthralgia [Unknown]
  - Herpes zoster [Unknown]
  - Joint swelling [Unknown]

NARRATIVE: CASE EVENT DATE: 201307
